FAERS Safety Report 5040535-4 (Version None)
Quarter: 2006Q2

REPORT INFORMATION
  Report Type: 
  Country: None (occurrence: None)
  Receive Date: 20060630
  Receipt Date: 20060505
  Transmission Date: 20061013
  Serious: Yes (Hospitalization)
  Sender: FDA-Public Use
  Company Number: US-ROCHE-447154

PATIENT
  Sex: Female

DRUGS (1)
  1. BONIVA [Suspect]
     Indication: DRUG USE FOR UNKNOWN INDICATION
     Route: 048

REACTIONS (4)
  - BACK PAIN [None]
  - CARDIAC DISORDER [None]
  - MUSCULOSKELETAL STIFFNESS [None]
  - SKIN WRINKLING [None]
